FAERS Safety Report 13775917 (Version 12)
Quarter: 2019Q3

REPORT INFORMATION
  Report Type: Report from Study
  Country: US (occurrence: US)
  Receive Date: 20170721
  Receipt Date: 20190916
  Transmission Date: 20191004
  Serious: Yes (Other)
  Sender: FDA-Public Use
  Company Number: US-INCYTE CORPORATION-2017IN005105

PATIENT

DRUGS (37)
  1. JAKAFI [Suspect]
     Active Substance: RUXOLITINIB
     Indication: POLYCYTHAEMIA VERA
     Dosage: 10 MG, BID
     Route: 065
     Dates: start: 20160928, end: 20161027
  2. FELODIPINE. [Concomitant]
     Active Substance: FELODIPINE
     Indication: HYPERTENSION
     Dosage: 10 MILLIGRAM, 7 DAYS
     Route: 065
     Dates: start: 20140424, end: 20190223
  3. FELODIPINE. [Concomitant]
     Active Substance: FELODIPINE
     Indication: ANGINA PECTORIS
  4. HYDREA [Concomitant]
     Active Substance: HYDROXYUREA
     Dosage: 500 MG, BID (4 DAYS/WEEK) / 500 MG, TID (M,W,F)
     Route: 065
     Dates: start: 20151008, end: 20160809
  5. HYDREA [Concomitant]
     Active Substance: HYDROXYUREA
     Dosage: 500 MG, TID (4 DAYS/WK) / 500 MG, BID (3 DAYS/WK)
     Route: 065
     Dates: start: 20160810, end: 20160927
  6. METFORMIN [Concomitant]
     Active Substance: METFORMIN HYDROCHLORIDE
     Indication: DIABETES MELLITUS
     Dosage: 1000 MG, BID
     Route: 065
     Dates: start: 20140102, end: 20160427
  7. METFORMIN [Concomitant]
     Active Substance: METFORMIN HYDROCHLORIDE
     Dosage: 850 MG, TID
     Route: 065
     Dates: start: 20160428, end: 20161013
  8. JAKAFI [Suspect]
     Active Substance: RUXOLITINIB
     Dosage: 5 MG, BID
     Route: 065
     Dates: start: 20161028, end: 20161202
  9. HYDREA [Concomitant]
     Active Substance: HYDROXYUREA
     Dosage: 500 MILLIGRAM, QD
     Route: 065
     Dates: start: 20190328, end: 20190411
  10. HYDREA [Concomitant]
     Active Substance: HYDROXYUREA
     Dosage: 500 MILLIGRAM, TID
     Route: 065
     Dates: start: 20190523
  11. METFORMIN [Concomitant]
     Active Substance: METFORMIN HYDROCHLORIDE
     Dosage: 500 MILLIGRAM, BID
     Route: 065
     Dates: start: 20190309
  12. IBUPROFEN. [Concomitant]
     Active Substance: IBUPROFEN
     Indication: PAIN MANAGEMENT
     Dosage: 800 MG, PRN
     Route: 065
     Dates: start: 20180807, end: 20190223
  13. COLACE [Concomitant]
     Active Substance: DOCUSATE SODIUM
     Indication: LAXATIVE SUPPORTIVE CARE
     Dosage: 250 MILLIGRAM, PRN
     Route: 065
     Dates: start: 20190219
  14. ASA [Concomitant]
     Active Substance: ASPIRIN
     Indication: POLYCYTHAEMIA VERA
     Dosage: 81 MG, QD
     Route: 065
     Dates: start: 20060410
  15. GLIPIZIDE. [Concomitant]
     Active Substance: GLIPIZIDE
     Indication: DIABETES MELLITUS
     Dosage: 5 MG, QD
     Route: 065
     Dates: start: 20140422, end: 20190308
  16. HYZAAR [Concomitant]
     Active Substance: HYDROCHLOROTHIAZIDE\LOSARTAN POTASSIUM
     Dosage: 1 DOSAGE FORM, QD
     Route: 065
     Dates: start: 20180719, end: 20190223
  17. NYSTATIN. [Concomitant]
     Active Substance: NYSTATIN
     Indication: RASH
     Dosage: BID
     Route: 065
     Dates: start: 20170825, end: 20180927
  18. HYDREA [Concomitant]
     Active Substance: HYDROXYUREA
     Indication: POLYCYTHAEMIA VERA
     Dosage: 500 MG, BID
     Route: 065
     Dates: start: 20140527, end: 20151007
  19. HYDREA [Concomitant]
     Active Substance: HYDROXYUREA
     Dosage: 500 MILLIGRAM, TID
     Route: 065
     Dates: start: 20170427, end: 20180125
  20. HYDREA [Concomitant]
     Active Substance: HYDROXYUREA
     Dosage: 500 MG, TID
     Route: 065
     Dates: start: 20180223, end: 20190223
  21. HYDREA [Concomitant]
     Active Substance: HYDROXYUREA
     Dosage: 500 MILLIGRAM, BID
     Route: 065
     Dates: start: 20190411, end: 20190520
  22. HYZAAR [Concomitant]
     Active Substance: HYDROCHLOROTHIAZIDE\LOSARTAN POTASSIUM
     Dosage: 1 DOSAGE FORM, QID
     Route: 065
     Dates: start: 20170228
  23. IMDUR [Concomitant]
     Active Substance: ISOSORBIDE MONONITRATE
     Indication: ANGINA PECTORIS
     Dosage: 30 MG, QD
     Route: 065
     Dates: start: 20140422
  24. LASIX [Concomitant]
     Active Substance: FUROSEMIDE
     Indication: OEDEMA PERIPHERAL
     Dosage: 20 MILLIGRAM, QD
     Route: 065
     Dates: start: 20190207, end: 20190228
  25. GLIPIZIDE. [Concomitant]
     Active Substance: GLIPIZIDE
     Dosage: 5 MILLIGRAM, BID
     Route: 065
     Dates: start: 20190309
  26. METFORMIN [Concomitant]
     Active Substance: METFORMIN HYDROCHLORIDE
     Dosage: 1000 MG, BID
     Route: 065
     Dates: start: 20161014, end: 20190308
  27. ZOCOR [Concomitant]
     Active Substance: SIMVASTATIN
     Indication: HYPERLIPIDAEMIA
     Dosage: 20 MG, QD
     Route: 065
     Dates: start: 20141013
  28. KETOCONAZOLE. [Concomitant]
     Active Substance: KETOCONAZOLE
     Indication: FUNGAL INFECTION
     Dosage: SMALL AMOUNT, BID
     Route: 065
     Dates: start: 20140218, end: 20151112
  29. ATENOLOL. [Concomitant]
     Active Substance: ATENOLOL
     Indication: HYPERTENSION
     Dosage: 100 MG, QD
     Route: 065
     Dates: start: 20140201
  30. HYDREA [Concomitant]
     Active Substance: HYDROXYUREA
     Dosage: 500 MG, TID (5 DAYS/WK) / 500 MG, BID (2 DAYS/WK)
     Route: 065
     Dates: start: 20180126, end: 20180222
  31. HYZAAR [Concomitant]
     Active Substance: HYDROCHLOROTHIAZIDE\LOSARTAN POTASSIUM
     Indication: HYPERTENSION
     Dosage: 1 DOSAGE FORM, QD
     Route: 065
     Dates: start: 20131119, end: 20161013
  32. NORCO [Concomitant]
     Active Substance: ACETAMINOPHEN\HYDROCODONE BITARTRATE
     Indication: PAIN MANAGEMENT
     Dosage: 1 DOSAGE FORM, PRN
     Route: 065
     Dates: start: 20190219
  33. JAKAFI [Suspect]
     Active Substance: RUXOLITINIB
     Dosage: 10 MG, BID
     Route: 065
     Dates: start: 20161203, end: 20161216
  34. ACTOS [Concomitant]
     Active Substance: PIOGLITAZONE HYDROCHLORIDE
     Indication: DIABETES MELLITUS
     Dosage: 15 MG, QD
     Route: 065
     Dates: start: 20140120, end: 20190303
  35. HYDREA [Concomitant]
     Active Substance: HYDROXYUREA
     Dosage: 500 MILLIGRAM, TID
     Route: 065
     Dates: start: 20190302, end: 20190327
  36. HYZAAR [Concomitant]
     Active Substance: HYDROCHLOROTHIAZIDE\LOSARTAN POTASSIUM
     Dosage: 1 DOSAGE FORM, QID
     Route: 065
     Dates: start: 20170228, end: 20180718
  37. NORCO [Concomitant]
     Active Substance: ACETAMINOPHEN\HYDROCODONE BITARTRATE
     Indication: PELVIC FRACTURE
     Dosage: 1 DOSAGE FORM, PRN
     Route: 065
     Dates: start: 20141201, end: 20150212

REACTIONS (8)
  - Bradycardia [Recovered/Resolved]
  - Haemoglobin decreased [Recovered/Resolved]
  - Haematocrit decreased [Recovered/Resolved]
  - Lymphocyte count decreased [Recovered/Resolved]
  - Haematocrit increased [Recovered/Resolved]
  - Lymphocyte count decreased [Recovered/Resolved]
  - Bradycardia [Recovered/Resolved]
  - Cough [Recovered/Resolved]

NARRATIVE: CASE EVENT DATE: 20161013
